FAERS Safety Report 20044720 (Version 1)
Quarter: 2021Q4

REPORT INFORMATION
  Report Type: Report from Study
  Country: US (occurrence: US)
  Receive Date: 20211108
  Receipt Date: 20211108
  Transmission Date: 20220304
  Serious: Yes (Death)
  Sender: FDA-Public Use
  Company Number: US-PFIZER INC-202101510785

PATIENT

DRUGS (6)
  1. CARBOPLATIN [Suspect]
     Active Substance: CARBOPLATIN
     Indication: Non-small cell lung cancer
     Dosage: 6.0 MG/ML*MIN (CONCENTRATION-TIME CURVE (AUC)EVERY 3 WEEKS FOR SIX CYCLES
     Route: 042
  2. BEVACIZUMAB [Suspect]
     Active Substance: BEVACIZUMAB
     Indication: Non-small cell lung cancer
     Dosage: 15 MG/KG  (OVER 90 MINUTES, ON DAY 1)EVERY 3 WEEKS FOR SIX CYCLES
     Route: 042
  3. PEMETREXED [Suspect]
     Active Substance: PEMETREXED
     Indication: Non-small cell lung cancer
     Dosage: 500 MG/M2 OVER 10 MINUTES, EVERY 3 WEEKS FOR SIX CYCLES
     Route: 042
  4. DEXAMETHASONE [Concomitant]
     Active Substance: DEXAMETHASONE
     Indication: Rash
     Dosage: 4 MG, TWICE DAILY DAY BEFORE, DAY OF, AND DAY AFTER EACH PEMETREXED DOSE
     Route: 048
  5. VITAMIN B12 [Concomitant]
     Active Substance: CYANOCOBALAMIN
     Dosage: 100 UG (ONCE WITHIN 2 WEEKS, AND ONCE EVERY 9 WEEKS THEREAFTER)
     Route: 030
  6. FOLIC ACID [Concomitant]
     Active Substance: FOLIC ACID
     Dosage: 1000 UG, DAILY (AT LEAST 5 DAYS BEFORE THE FIRST DOSE OF CHEMOTHERAPY)
     Route: 048

REACTIONS (1)
  - Pneumonia [Fatal]
